FAERS Safety Report 4282064-1 (Version None)
Quarter: 2004Q1

REPORT INFORMATION
  Report Type: 
  Country: None (occurrence: None)
  Receive Date: 20040130
  Receipt Date: 20021202
  Transmission Date: 20041129
  Serious: No
  Sender: FDA-Public Use
  Company Number: US-BRISTOL-MYERS SQUIBB COMPANY-12126652

PATIENT
  Age: 28 Year
  Sex: Female
  Weight: 52 kg

DRUGS (2)
  1. TRAZODONE HCL [Suspect]
     Indication: INSOMNIA
     Dosage: AT BEDTIME
     Route: 048
     Dates: start: 20020725, end: 20021025
  2. EFFEXOR [Concomitant]

REACTIONS (1)
  - VISUAL DISTURBANCE [None]
